FAERS Safety Report 6547710-8 (Version None)
Quarter: 2010Q1

REPORT INFORMATION
  Report Type: 
  Country: None (occurrence: None)
  Receive Date: 20100123
  Receipt Date: 20100114
  Transmission Date: 20100710
  Serious: Yes (Other)
  Sender: FDA-Public Use
  Company Number: US-JNJFOC-20100106692

PATIENT
  Sex: Male

DRUGS (2)
  1. DURAGESIC-100 [Suspect]
     Indication: DRUG USE FOR UNKNOWN INDICATION
     Route: 062
  2. DURAGESIC-100 [Suspect]
     Route: 062

REACTIONS (6)
  - ADENOCARCINOMA [None]
  - FEELING JITTERY [None]
  - PAIN [None]
  - PERIPHERAL COLDNESS [None]
  - TREATMENT NONCOMPLIANCE [None]
  - WITHDRAWAL SYNDROME [None]
